FAERS Safety Report 9776849 (Version 3)
Quarter: 2014Q1

REPORT INFORMATION
  Report Type: Spontaneous
  Country: JP (occurrence: JP)
  Receive Date: 20131221
  Receipt Date: 20140326
  Transmission Date: 20141002
  Serious: Yes (Other)
  Sender: FDA-Public Use
  Company Number: PHHY2013JP149114

PATIENT
  Age: 88 Year
  Sex: Female

DRUGS (6)
  1. ZOMETA [Suspect]
     Indication: METASTASES TO BONE
     Dosage: 4 MG (PER ADMINISTRATION)
     Route: 041
     Dates: start: 2011
  2. EDIROL [Concomitant]
     Dosage: UNK UKN, UNK
  3. TENORMIN [Concomitant]
     Dosage: UNK UKN, UNK
  4. DEPAS [Concomitant]
     Dosage: UNK UKN, UNK
     Route: 048
  5. DEPROMEL [Concomitant]
     Dosage: UNK UKN, UNK
     Route: 048
  6. ZOLPIDEM TARTRATE [Concomitant]
     Dosage: UNK UKN, UNK
     Route: 048

REACTIONS (2)
  - Fall [Unknown]
  - Femur fracture [Recovered/Resolved]
